FAERS Safety Report 10803289 (Version 2)
Quarter: 2015Q1

REPORT INFORMATION
  Report Type: Report from Study
  Country: BE (occurrence: BE)
  Receive Date: 20150217
  Receipt Date: 20150227
  Transmission Date: 20150721
  Serious: Yes (Hospitalization)
  Sender: FDA-Public Use
  Company Number: BE-BAYER-2015-000871

PATIENT
  Age: 85 Year
  Sex: Male

DRUGS (6)
  1. NEXAVAR [Suspect]
     Active Substance: SORAFENIB
     Indication: HEPATOCELLULAR CARCINOMA
     Dosage: 400 MG, DAILY
     Route: 048
     Dates: start: 20141217
  2. AMLOR [Concomitant]
     Active Substance: AMLODIPINE BESYLATE
     Indication: HYPERTENSION
  3. NEXAVAR [Suspect]
     Active Substance: SORAFENIB
     Indication: HEPATOCELLULAR CARCINOMA
     Dosage: 600 MG OF DAILY DOSE
     Route: 048
     Dates: end: 20150210
  4. INSULIN [INSULIN] [Concomitant]
     Active Substance: INSULIN NOS
  5. PANTO [PANTOPRAZOLE SODIUM] [Concomitant]
     Dosage: 20 MG, UNK
  6. RIVOTRIL [Concomitant]
     Active Substance: CLONAZEPAM

REACTIONS (10)
  - Malaise [None]
  - Diarrhoea [None]
  - Hypotension [None]
  - Hypertension [Not Recovered/Not Resolved]
  - Hypoglycaemia [None]
  - Hypertension [None]
  - Epistaxis [None]
  - Sepsis [None]
  - Nasal mucosal disorder [None]
  - Muscle tightness [None]

NARRATIVE: CASE EVENT DATE: 20141224
